FAERS Safety Report 8786113 (Version 1)
Quarter: 2012Q4

REPORT INFORMATION
  Report Type: Report from Study
  Country: US (occurrence: US)
  Receive Date: 20120914
  Receipt Date: 20120914
  Transmission Date: 20130627
  Serious: No
  Sender: FDA-Public Use
  Company Number: US-VERTEX PHARMACEUTICAL INC.-AE-2012-011465

PATIENT
  Sex: Male
  Weight: 102.1 kg

DRUGS (7)
  1. INCIVEK [Suspect]
     Indication: HEPATITIS C
     Route: 048
     Dates: start: 2012
  2. RIBASPHERE [Concomitant]
     Indication: HEPATITIS C
     Route: 048
     Dates: start: 2012
  3. PEGASYS [Concomitant]
     Indication: HEPATITIS C
     Route: 058
     Dates: start: 2012
  4. NADOLOL [Concomitant]
  5. CITALOPRAM HBR [Concomitant]
  6. BENICAR HCT [Concomitant]
  7. EQL OMEPRAZOLE DR [Concomitant]

REACTIONS (3)
  - Anal pruritus [Unknown]
  - Anorectal discomfort [Unknown]
  - Diarrhoea [Unknown]
